FAERS Safety Report 25406276 (Version 1)
Quarter: 2025Q2

REPORT INFORMATION
  Report Type: Spontaneous
  Country: ES (occurrence: ES)
  Receive Date: 20250606
  Receipt Date: 20250606
  Transmission Date: 20250717
  Serious: Yes (Life-Threatening, Hospitalization)
  Sender: ABBVIE
  Company Number: None

PATIENT
  Age: 83 Year
  Sex: Male

DRUGS (2)
  1. OXYTROL [Suspect]
     Active Substance: OXYBUTYNIN
     Indication: Product used for unknown indication
     Route: 062
  2. FESOTERODINE [Suspect]
     Active Substance: FESOTERODINE
     Indication: Product used for unknown indication
     Route: 048

REACTIONS (2)
  - Cholelithiasis [Unknown]
  - Ileus paralytic [Unknown]

NARRATIVE: CASE EVENT DATE: 20250509
